FAERS Safety Report 5876037-2 (Version None)
Quarter: 2008Q3

REPORT INFORMATION
  Report Type: 
  Country: None (occurrence: None)
  Receive Date: 20080905
  Receipt Date: 20080815
  Transmission Date: 20090109
  Serious: Yes (Other)
  Sender: FDA-Public Use
  Company Number: 001#8#2008-00499

PATIENT
  Sex: Male

DRUGS (4)
  1. NEUPRO [Suspect]
     Indication: PARKINSON'S DISEASE
     Dosage: 16 MG/24H (16 MG/24H 1 IN 1 DAY (S)) TRANSDERMAL
     Route: 062
     Dates: start: 20070601
  2. MADOPAR               (BENSERAZIDE HYDROCHLORIDE, LEVODOPA) [Concomitant]
  3. ENTACAPONE (ENTACAPONE) [Concomitant]
  4. PERGOLIDE MESYLATE [Concomitant]

REACTIONS (1)
  - HYPOKINESIA [None]
